FAERS Safety Report 8448950-3 (Version None)
Quarter: 2012Q2

REPORT INFORMATION
  Report Type: 
  Country: None (occurrence: None)
  Receive Date: 20120619
  Receipt Date: 20120612
  Transmission Date: 20120825
  Serious: Yes (Hospitalization)
  Sender: FDA-Public Use
  Company Number: BE-GLAXOSMITHKLINE-B0809011A

PATIENT
  Sex: Male

DRUGS (3)
  1. ZOFRAN [Suspect]
     Indication: NAUSEA
     Route: 065
  2. ZOFRAN [Suspect]
     Route: 042
  3. CARBOPLATIN [Suspect]
     Indication: TESTICULAR NEOPLASM
     Route: 042

REACTIONS (4)
  - RECTAL HAEMORRHAGE [None]
  - COLITIS ISCHAEMIC [None]
  - DIARRHOEA [None]
  - DIARRHOEA HAEMORRHAGIC [None]
